FAERS Safety Report 5558110-1 (Version None)
Quarter: 2007Q4

REPORT INFORMATION
  Report Type: 
  Country: None (occurrence: None)
  Receive Date: 20071214
  Receipt Date: 20071203
  Transmission Date: 20080405
  Serious: Yes (Death, Hospitalization)
  Sender: FDA-Public Use
  Company Number: US-AMGEN-US236524

PATIENT
  Sex: Male

DRUGS (11)
  1. PANITUMUMAB [Suspect]
     Indication: COLORECTAL CANCER
     Route: 042
     Dates: start: 20070319, end: 20070625
  2. PANITUMUMAB [Suspect]
     Route: 042
     Dates: start: 20070626, end: 20070725
  3. IRINOTECAN HCL [Concomitant]
     Route: 042
  4. PERCOCET [Concomitant]
     Route: 065
  5. RISPERDAL [Concomitant]
     Route: 065
  6. ATIVAN [Concomitant]
     Route: 065
  7. PREVACID [Concomitant]
     Route: 065
  8. EFFEXOR [Concomitant]
     Route: 065
  9. PROCRIT [Concomitant]
     Route: 065
  10. FLUOROURACIL [Concomitant]
     Route: 042
  11. LEUCOVORIN CALCIUM [Concomitant]
     Route: 042

REACTIONS (3)
  - DEHYDRATION [None]
  - DISEASE PROGRESSION [None]
  - INTESTINAL OBSTRUCTION [None]
